FAERS Safety Report 6167753-6 (Version None)
Quarter: 2009Q2

REPORT INFORMATION
  Report Type: 
  Country: None (occurrence: None)
  Receive Date: 20090427
  Receipt Date: 20090326
  Transmission Date: 20091009
  Serious: No
  Sender: FDA-Public Use
  Company Number: US-BAYER-200916655NA

PATIENT
  Sex: Male

DRUGS (1)
  1. CIPROFLOXACIN HCL [Suspect]
     Indication: BIOPSY PROSTATE
     Dosage: TOTAL DAILY DOSE: 500 MG  UNIT DOSE: 500 MG
     Dates: start: 20090317, end: 20090317

REACTIONS (3)
  - HEADACHE [None]
  - MUSCULOSKELETAL DISCOMFORT [None]
  - PHOTOPHOBIA [None]
